FAERS Safety Report 10936600 (Version 1)
Quarter: 2015Q1

REPORT INFORMATION
  Report Type: Spontaneous
  Country: US (occurrence: None)
  Receive Date: 20150320
  Receipt Date: 20150320
  Transmission Date: 20150721
  Serious: No
  Sender: FDA-Public Use
  Company Number: None

PATIENT
  Age: 15 Year
  Sex: Female
  Weight: 60.33 kg

DRUGS (2)
  1. ZIPRASIDONE 20 MG DR. REDDY^S [Suspect]
     Active Substance: ZIPRASIDONE
     Indication: MAJOR DEPRESSION
     Dosage: 3 PILLS BID
     Route: 048
     Dates: start: 20150312, end: 20150313
  2. FLUOXETINE [Concomitant]
     Active Substance: FLUOXETINE\FLUOXETINE HYDROCHLORIDE

REACTIONS (2)
  - Cogwheel rigidity [None]
  - Swollen tongue [None]

NARRATIVE: CASE EVENT DATE: 20150313
